FAERS Safety Report 6722769-3 (Version None)
Quarter: 2010Q2

REPORT INFORMATION
  Report Type: 
  Country: None (occurrence: None)
  Receive Date: 20100511
  Receipt Date: 20050726
  Transmission Date: 20101027
  Serious: Yes (Other)
  Sender: FDA-Public Use
  Company Number: 2009-3023

PATIENT
  Age: 75 Year
  Sex: Male

DRUGS (1)
  1. APOMORPHINE HYDROCHLORIDE (APOKYN) (APOMORPHINE HYDROCHLORIDE ) (APOMO [Suspect]
     Indication: PARKINSON'S DISEASE
     Dosage: 5MG/HR FOR 12HRS (5 MG,12 IN 24 HR),SUBCUTANEOUS
     Route: 058
     Dates: start: 20050316, end: 20050420

REACTIONS (2)
  - AGGRESSION [None]
  - HYPERSEXUALITY [None]
